FAERS Safety Report 7250074-8 (Version None)
Quarter: 2011Q1

REPORT INFORMATION
  Report Type: 
  Country: None (occurrence: None)
  Receive Date: 20110128
  Receipt Date: 20101221
  Transmission Date: 20110831
  Serious: Yes (Other)
  Sender: FDA-Public Use
  Company Number: US-BAYER-200937527NA

PATIENT
  Sex: Female
  Weight: 113.64 kg

DRUGS (20)
  1. PERCOCET [Concomitant]
  2. KEFLEX [Concomitant]
  3. SULAR [Concomitant]
     Indication: HYPERTENSION
  4. ISORDIL [Concomitant]
  5. COREG [Concomitant]
  6. ADVAIR [Concomitant]
  7. MAGNEVIST [Suspect]
     Indication: NUCLEAR MAGNETIC RESONANCE IMAGING
     Dosage: ^2ML/KG^
     Dates: start: 20041112, end: 20041112
  8. AUGMENTIN '125' [Concomitant]
  9. LASIX [Concomitant]
  10. IMDUR [Concomitant]
  11. BENADRYL [Concomitant]
  12. DARVOCET [Concomitant]
     Indication: PAIN
     Dosage: 1 G, TID
  13. ASPIRIN [Concomitant]
  14. ISOSORBIDE DINITRATE [Concomitant]
     Dosage: UNK
  15. CARVEDILOL [Concomitant]
     Indication: HYPERTENSION
     Dosage: 1/2 TAB BID
  16. LISINOPRIL [Concomitant]
  17. COUMADIN [Concomitant]
     Dosage: UNK
     Dates: start: 20040101
  18. NORVASC [Concomitant]
  19. UNASYN [Concomitant]
  20. R0OLOIDS (UNCODEABLE; ^UNCLASSIFIABLE^ NOS) [Concomitant]

REACTIONS (21)
  - OEDEMA PERIPHERAL [None]
  - SKIN TIGHTNESS [None]
  - BACK PAIN [None]
  - SKIN INDURATION [None]
  - NEPHROGENIC SYSTEMIC FIBROSIS [None]
  - JOINT CONTRACTURE [None]
  - ARTHRALGIA [None]
  - MOBILITY DECREASED [None]
  - BLISTER [None]
  - ARTHRITIS [None]
  - SKIN ULCER [None]
  - ERYTHEMA [None]
  - PAIN [None]
  - BURNING SENSATION [None]
  - PRURITUS [None]
  - PAIN OF SKIN [None]
  - SKIN DISCOLOURATION [None]
  - SKIN LESION [None]
  - SKIN WARM [None]
  - DRY SKIN [None]
  - SKIN EXFOLIATION [None]
